FAERS Safety Report 4503855-5 (Version None)
Quarter: 2004Q4

REPORT INFORMATION
  Report Type: 
  Country: None (occurrence: None)
  Receive Date: 20041117
  Receipt Date: 20041112
  Transmission Date: 20050328
  Serious: Yes (Life-Threatening, Hospitalization, Disabling)
  Sender: FDA-Public Use
  Company Number: US-MERCK-0411USA02381

PATIENT
  Age: 52 Year
  Sex: Female

DRUGS (2)
  1. VIOXX [Suspect]
     Indication: PAIN
     Route: 048
  2. [THERAPY UNSPECIFIED] [Concomitant]
     Indication: DEPRESSION
     Route: 065

REACTIONS (2)
  - RENAL FAILURE ACUTE [None]
  - WEIGHT DECREASED [None]
